FAERS Safety Report 10268732 (Version 1)
Quarter: 2014Q2

REPORT INFORMATION
  Report Type: Spontaneous
  Country: US (occurrence: US)
  Receive Date: 20140630
  Receipt Date: 20140630
  Transmission Date: 20141212
  Serious: Yes (Death, Other)
  Sender: FDA-Public Use
  Company Number: US-BAXTER-2014BAX034617

PATIENT
  Age: 74 Year
  Sex: Male
  Weight: 70 kg

DRUGS (5)
  1. BICART 720 [Suspect]
     Indication: HAEMODIALYSIS
     Route: 065
     Dates: start: 20140623
  2. 0.9% SODIUM CHLORIDE INJECTION [Suspect]
     Indication: BLOOD PRESSURE DECREASED
     Route: 040
     Dates: start: 20140623
  3. 0.9% SODIUM CHLORIDE INJECTION [Suspect]
     Indication: DEVICE PRIMING
     Dosage: 2ND BOLUS
     Route: 040
     Dates: start: 20140623
  4. 0.9% SODIUM CHLORIDE INJECTION [Suspect]
     Route: 042
     Dates: start: 20140623
  5. ALBUMIN [Suspect]
     Indication: BLOOD PRESSURE DECREASED
     Route: 040
     Dates: start: 20140623

REACTIONS (2)
  - Cardiac arrest [Fatal]
  - Blood pressure decreased [Not Recovered/Not Resolved]
